FAERS Safety Report 4401361-X (Version None)
Quarter: 2004Q3

REPORT INFORMATION
  Report Type: 
  Country: None (occurrence: None)
  Receive Date: 20040907
  Receipt Date: 20040324
  Transmission Date: 20050211
  Serious: Yes (Other)
  Sender: FDA-Public Use
  Company Number: US-BRISTOL-MYERS SQUIBB COMPANY-12540829

PATIENT
  Age: 78 Year
  Sex: Female
  Weight: 62 kg

DRUGS (8)
  1. COUMADIN [Suspect]
     Indication: CARDIAC DISORDER
     Route: 048
  2. COUMADIN [Suspect]
     Indication: CARDIAC PACEMAKER INSERTION
     Route: 048
  3. COUMADIN [Suspect]
     Indication: PHLEBITIS
     Route: 048
  4. COUMADIN [Suspect]
     Indication: CARDIAC ABLATION
     Route: 048
  5. ANTIHISTAMINE DRUGS [Concomitant]
  6. BLOOD PRESSURE PILL [Concomitant]
  7. PERCOCET [Concomitant]
  8. AMBIEN [Concomitant]

REACTIONS (3)
  - HAEMATEMESIS [None]
  - NAUSEA [None]
  - RECTAL HAEMORRHAGE [None]
